FAERS Safety Report 24624197 (Version 2)
Quarter: 2024Q4

REPORT INFORMATION
  Report Type: Spontaneous
  Country: US (occurrence: US)
  Receive Date: 20241115
  Receipt Date: 20241202
  Transmission Date: 20250114
  Serious: No
  Sender: TEVA
  Company Number: US-TEVA-VS-3259558

PATIENT
  Age: 82 Year
  Sex: Female

DRUGS (2)
  1. AUSTEDO XR [Suspect]
     Active Substance: DEUTETRABENAZINE
     Indication: Tardive dyskinesia
     Route: 065
     Dates: start: 2024, end: 2024
  2. AUSTEDO XR [Suspect]
     Active Substance: DEUTETRABENAZINE
     Indication: Tardive dyskinesia
     Route: 065
     Dates: start: 2024

REACTIONS (6)
  - Tremor [Unknown]
  - Therapeutic product effect decreased [Unknown]
  - Insomnia [Unknown]
  - Inability to afford medication [Unknown]
  - Drug dose titration not performed [Unknown]
  - Pain [Unknown]

NARRATIVE: CASE EVENT DATE: 20241028
